FAERS Safety Report 4686965-1 (Version None)
Quarter: 2005Q2

REPORT INFORMATION
  Report Type: 
  Country: None (occurrence: None)
  Receive Date: 20050606
  Receipt Date: 20050524
  Transmission Date: 20051028
  Serious: Yes (Hospitalization, Other)
  Sender: FDA-Public Use
  Company Number: 2005068722

PATIENT
  Age: 45 Year
  Sex: Female

DRUGS (6)
  1. DOXEPIN HCL [Suspect]
     Indication: ILL-DEFINED DISORDER
     Dosage: 1.6 GRAM, ORAL
     Route: 048
  2. DIAZEPAM [Suspect]
     Indication: ILL-DEFINED DISORDER
     Dosage: 2 GRAM, ORAL
     Route: 048
  3. TEMAZEPAM [Concomitant]
     Indication: ILL-DEFINED DISORDER
     Dosage: 200 MG, ORAL
     Route: 048
  4. CLONAZEPAM [Suspect]
     Indication: ILL-DEFINED DISORDER
     Dosage: 100 MG, ORAL
     Route: 048
  5. VERAPAMIL HYDROCHLORIDE [Suspect]
     Indication: ILL-DEFINED DISORDER
     Dosage: 7.2 GRAM, ORAL
     Route: 048
  6. QUETIAPINE FUMARATE [Suspect]
     Indication: ILL-DEFINED DISORDER
     Dosage: 10 GRAM, ORAL
     Route: 048

REACTIONS (18)
  - ABDOMINAL DISTENSION [None]
  - ATRIOVENTRICULAR BLOCK FIRST DEGREE [None]
  - BRADYCARDIA [None]
  - CARDIAC ARREST [None]
  - DEPRESSION [None]
  - DRUG INEFFECTIVE [None]
  - EJECTION FRACTION DECREASED [None]
  - HAEMODIALYSIS [None]
  - HAEMODYNAMIC INSTABILITY [None]
  - HYPOTENSION [None]
  - INTENTIONAL MISUSE [None]
  - LOSS OF CONSCIOUSNESS [None]
  - METABOLIC ACIDOSIS [None]
  - MULTIPLE DRUG OVERDOSE [None]
  - SHOCK [None]
  - SUBENDOCARDIAL ISCHAEMIA [None]
  - THERAPY NON-RESPONDER [None]
  - TROPONIN I INCREASED [None]
